FAERS Safety Report 16264953 (Version 2)
Quarter: 2019Q2

REPORT INFORMATION
  Report Type: Spontaneous
  Country: BE (occurrence: BE)
  Receive Date: 20190502
  Receipt Date: 20190506
  Transmission Date: 20190711
  Serious: Yes (Other)
  Sender: FDA-Public Use
  Company Number: BE-ABBVIE-19K-013-2765021-00

PATIENT

DRUGS (1)
  1. VENCLYXTO [Suspect]
     Active Substance: VENETOCLAX
     Indication: CHRONIC LYMPHOCYTIC LEUKAEMIA
     Route: 048
     Dates: start: 2019, end: 2019

REACTIONS (3)
  - Chronic lymphocytic leukaemia transformation [Unknown]
  - Drug ineffective [Unknown]
  - Chronic lymphocytic leukaemia [Unknown]
